FAERS Safety Report 4795488-0 (Version None)
Quarter: 2005Q4

REPORT INFORMATION
  Report Type: 
  Country: None (occurrence: None)
  Receive Date: 20051006
  Receipt Date: 20051006
  Transmission Date: 20060501
  Serious: Yes (Disabling)
  Sender: FDA-Public Use
  Company Number: None

PATIENT
  Age: 42 Year
  Sex: Male
  Weight: 102.5129 kg

DRUGS (6)
  1. NIASPAN [Suspect]
     Indication: HYPERLIPIDAEMIA
     Dosage: SEE IMAGE
     Route: 048
     Dates: start: 20050201, end: 20050401
  2. NIASPAN [Suspect]
     Indication: HYPERLIPIDAEMIA
     Dosage: SEE IMAGE
     Route: 048
     Dates: start: 20050401, end: 20050531
  3. ACYCLOVIR OINT [Concomitant]
  4. SPECTAZOLE [Concomitant]
  5. VERAPAMIL [Concomitant]
  6. ATACAND [Concomitant]

REACTIONS (5)
  - ALANINE AMINOTRANSFERASE INCREASED [None]
  - BILIARY TRACT DISORDER [None]
  - HYPERSENSITIVITY [None]
  - RASH PRURITIC [None]
  - URTICARIA [None]
